FAERS Safety Report 8291220-7 (Version None)
Quarter: 2012Q2

REPORT INFORMATION
  Report Type: 
  Country: None (occurrence: None)
  Receive Date: 20120417
  Receipt Date: 20120409
  Transmission Date: 20120825
  Serious: Yes (Other)
  Sender: FDA-Public Use
  Company Number: US-BAYER-2012-029111

PATIENT
  Age: 38 Year
  Sex: Female

DRUGS (14)
  1. CALCIUM CARBONATE [Concomitant]
  2. SYNTHROID [Concomitant]
     Dosage: 25 MCG/24HR, QD
  3. TYLENOL (CAPLET) [Concomitant]
     Dosage: PRN
  4. YASMIN [Suspect]
     Dosage: UNK
     Route: 048
     Dates: start: 20080301
  5. MULTI-VITAMIN [Concomitant]
  6. AZITHROMYCIN [Concomitant]
     Dosage: 250 MG,2 TABLETS TODAY THEN ONE DAILY UNTIL ALL TAKEN. 5 TABLETS DISPENSED
     Dates: start: 20080204
  7. TAMIFLU [Concomitant]
     Dosage: 75 MG, QD
     Dates: start: 20080211
  8. DARVOCET [Concomitant]
     Dosage: UNK
  9. BISACODYL [Concomitant]
     Dosage: 5 MG, AS DIRECTED
     Dates: start: 20080204
  10. CELEBREX [Concomitant]
     Indication: PAIN
     Dosage: UNK
  11. TRILYTE [Concomitant]
     Dosage: AS DIRECTED
     Dates: start: 20080204
  12. METOCLOPRAMIDE [Concomitant]
     Dosage: 10 MG, AS DIRECTED
     Dates: start: 20080204
  13. YAZ [Suspect]
     Dosage: UNK
     Route: 048
     Dates: start: 20080301
  14. METRONIDAZOLE [Concomitant]
     Dosage: 500 MG, BID FOR 5 DAYS
     Dates: start: 20080212

REACTIONS (5)
  - FEAR [None]
  - INJURY [None]
  - DEEP VEIN THROMBOSIS [None]
  - PAIN IN EXTREMITY [None]
  - PAIN [None]
